FAERS Safety Report 12896417 (Version 2)
Quarter: 2017Q2

REPORT INFORMATION
  Report Type: Spontaneous
  Country: US (occurrence: US)
  Receive Date: 20161031
  Receipt Date: 20170505
  Transmission Date: 20170830
  Serious: No
  Sender: FDA-Public Use
  Company Number: US-JAZZ-2016-US-016428

PATIENT
  Sex: Male

DRUGS (13)
  1. XYREM [Suspect]
     Active Substance: SODIUM OXYBATE
     Dosage: 4.5 G, BID
     Route: 048
     Dates: start: 201602
  2. LANTUS [Concomitant]
     Active Substance: INSULIN GLARGINE
  3. HARVONI [Concomitant]
     Active Substance: LEDIPASVIR\SOFOSBUVIR
  4. XYREM [Suspect]
     Active Substance: SODIUM OXYBATE
     Indication: NARCOLEPSY
     Dosage: 2.25 G, BID
     Route: 048
     Dates: start: 201601, end: 201601
  5. ASA [Concomitant]
     Active Substance: ASPIRIN
  6. TYLENOL WITH CODEINE [Concomitant]
     Active Substance: ACETAMINOPHEN\CODEINE PHOSPHATE
  7. GLIPIZIDE. [Concomitant]
     Active Substance: GLIPIZIDE
  8. LISINOPRIL. [Concomitant]
     Active Substance: LISINOPRIL
  9. ATORVASTATIN [Concomitant]
     Active Substance: ATORVASTATIN
  10. METFORMIN HCL [Concomitant]
     Active Substance: METFORMIN HYDROCHLORIDE
  11. XYREM [Suspect]
     Active Substance: SODIUM OXYBATE
     Dosage: DOSE ADJUSTMENTS
     Route: 048
     Dates: start: 201601, end: 201602
  12. NUVIGIL [Concomitant]
     Active Substance: ARMODAFINIL
  13. GABAPENTIN. [Concomitant]
     Active Substance: GABAPENTIN

REACTIONS (3)
  - Gait disturbance [Not Recovered/Not Resolved]
  - Inappropriate schedule of drug administration [Unknown]
  - Constipation [Recovering/Resolving]

NARRATIVE: CASE EVENT DATE: 2016
